FAERS Safety Report 4910870-6 (Version None)
Quarter: 2006Q1

REPORT INFORMATION
  Report Type: 
  Country: None (occurrence: None)
  Receive Date: 20060208
  Receipt Date: 20060208
  Transmission Date: 20060701
  Serious: Yes (Hospitalization)
  Sender: FDA-Public Use
  Company Number: None

PATIENT
  Age: 86 Year
  Sex: Male
  Weight: 89.3586 kg

DRUGS (9)
  1. WARFARIN SODIUM [Suspect]
     Indication: ATRIAL FIBRILLATION
     Dosage: 7.5 ON M+FR, SAT 5 ALL OTHER DAYS
     Dates: start: 20051018, end: 20051121
  2. ACETAMINOPHEN [Concomitant]
  3. CLOTRIMAZOLE [Concomitant]
  4. FOSINOPRIL SODIUM [Concomitant]
  5. GUAIFENESIN [Concomitant]
  6. POTASSIUM CL [Concomitant]
  7. WARFARIN [Concomitant]
  8. CALCIUM GLUCONATE [Concomitant]
  9. PREDNISONE [Concomitant]

REACTIONS (3)
  - ANAEMIA [None]
  - DIZZINESS [None]
  - FAECES DISCOLOURED [None]
